FAERS Safety Report 9886532 (Version 2)
Quarter: 2014Q3

REPORT INFORMATION
  Report Type: Spontaneous
  Country: US (occurrence: US)
  Receive Date: 20140210
  Receipt Date: 20140818
  Transmission Date: 20150326
  Serious: Yes (Hospitalization, Other)
  Sender: FDA-Public Use
  Company Number: US-009507513-1402USA003621

PATIENT
  Sex: Female

DRUGS (1)
  1. NUVARING [Suspect]
     Active Substance: ETHINYL ESTRADIOL\ETONOGESTREL
     Indication: CONTRACEPTION
     Dosage: UNK
     Route: 067
     Dates: end: 20111224

REACTIONS (9)
  - Pulmonary embolism [Unknown]
  - Diarrhoea [Unknown]
  - Hypothyroidism [Unknown]
  - Headache [Unknown]
  - Dehydration [Unknown]
  - Dizziness postural [Unknown]
  - Vomiting [Unknown]
  - Paraesthesia [Unknown]
  - Electrolyte imbalance [Unknown]

NARRATIVE: CASE EVENT DATE: 201111
